FAERS Safety Report 8780777 (Version 1)
Quarter: 2012Q4

REPORT INFORMATION
  Report Type: Report from Study
  Country: US (occurrence: US)
  Receive Date: 20120913
  Receipt Date: 20120913
  Transmission Date: 20130627
  Serious: No
  Sender: FDA-Public Use
  Company Number: US-VERTEX PHARMACEUTICAL INC.-AE-2012-008251

PATIENT
  Age: 56 Year
  Sex: Male

DRUGS (6)
  1. INCIVEK [Suspect]
     Indication: HEPATITIS C
     Route: 048
     Dates: start: 20120420
  2. PEGASYS [Concomitant]
     Indication: HEPATITIS C
     Dates: start: 20120420
  3. RIBAPACK [Concomitant]
     Indication: HEPATITIS C
     Dates: start: 20120420
  4. NASONEX [Concomitant]
  5. CLARINEX D [Concomitant]
  6. TYLENOL [Concomitant]

REACTIONS (1)
  - Anaemia [Not Recovered/Not Resolved]
